FAERS Safety Report 4659517-7 (Version None)
Quarter: 2005Q2

REPORT INFORMATION
  Report Type: 
  Country: None (occurrence: None)
  Receive Date: 20050511
  Receipt Date: 20050426
  Transmission Date: 20051028
  Serious: Yes (Hospitalization)
  Sender: FDA-Public Use
  Company Number: CIO05008042

PATIENT
  Sex: 0

DRUGS (1)
  1. METAMUCIL-2 [Suspect]
     Dosage: ORAL
     Route: 048

REACTIONS (2)
  - HYPERSENSITIVITY [None]
  - REACTION TO MEDICAL AGENT PRESERVATIVES [None]
